FAERS Safety Report 9411839 (Version 1)
Quarter: 2013Q3

REPORT INFORMATION
  Report Type: Spontaneous
  Country: US (occurrence: US)
  Receive Date: 20130722
  Receipt Date: 20130722
  Transmission Date: 20140515
  Serious: No
  Sender: FDA-Public Use
  Company Number: US-PFIZER INC-2013180047

PATIENT
  Age: 60 Year
  Sex: Female

DRUGS (11)
  1. EFFEXOR XR [Suspect]
     Indication: FIBROMYALGIA
     Dosage: 75 MG, 1X/DAY (ONCE DAILY)
     Route: 048
     Dates: start: 20130524, end: 2013
  2. EFFEXOR XR [Suspect]
     Indication: ANXIETY
  3. MIRALAX [Concomitant]
     Dosage: 17 G, AS NEEDED (MIXED WITH 8 OZ WATER, JUICE, SODA, COFFEE OR TEA
     Route: 048
     Dates: start: 20130510
  4. LAMISIL [Concomitant]
     Dosage: 250 MG, 1X/DAY
     Route: 048
     Dates: start: 20130517
  5. GLYCERIN [Concomitant]
     Dosage: UNK, AS NEEDED (PRN)
     Dates: start: 20130510
  6. IBUPROFEN [Concomitant]
     Dosage: 200 MG, AS NEEDED EVERY 4-6 HOURS FOOD
     Route: 048
     Dates: start: 20130510
  7. PROPANOLOL [Concomitant]
     Dosage: 80 MG, AS NEEDED ONCE A DAY
     Route: 048
     Dates: start: 20130510
  8. MELOXICAM [Concomitant]
     Dosage: 7.5 MG, 1X/DAY
     Route: 048
     Dates: start: 20130524
  9. LAMISIL AT [Concomitant]
     Dosage: UNK, 1X/DAY
     Route: 061
     Dates: start: 20130517
  10. MELATONIN [Concomitant]
     Dosage: 5 MG, 2X/DAY
     Dates: start: 20130510
  11. IODINE [Concomitant]
     Dosage: UNK, 6 PILLS A DAY
     Dates: start: 20130510

REACTIONS (2)
  - Diarrhoea [Recovered/Resolved]
  - Off label use [Recovered/Resolved]
